FAERS Safety Report 23992197 (Version 1)
Quarter: 2024Q2

REPORT INFORMATION
  Report Type: Spontaneous
  Country: KR (occurrence: KR)
  Receive Date: 20240620
  Receipt Date: 20240620
  Transmission Date: 20240716
  Serious: Yes (Other)
  Sender: FDA-Public Use
  Company Number: KR-STRIDES ARCOLAB LIMITED-2024SP007096

PATIENT
  Age: 28 Year
  Sex: Female

DRUGS (3)
  1. DOXYCYCLINE [Suspect]
     Active Substance: DOXYCYCLINE\DOXYCYCLINE HYCLATE
     Indication: Pelvic inflammatory disease
     Dosage: 100 MILLIGRAM, BID
     Route: 048
  2. DOXYCYCLINE [Suspect]
     Active Substance: DOXYCYCLINE\DOXYCYCLINE HYCLATE
     Dosage: 30 MILLIGRAM (ORAL DRUG CHALLENGE TEST )
     Route: 048
  3. MINOCYCLINE [Suspect]
     Active Substance: MINOCYCLINE HYDROCHLORIDE
     Indication: Drug provocation test
     Dosage: 10 MILLIGRAM
     Route: 048

REACTIONS (3)
  - Angioedema [Unknown]
  - Cross sensitivity reaction [Unknown]
  - Off label use [Unknown]
